FAERS Safety Report 23508990 (Version 1)
Quarter: 2024Q1

REPORT INFORMATION
  Report Type: Spontaneous
  Country: US (occurrence: US)
  Receive Date: 20240209
  Receipt Date: 20240209
  Transmission Date: 20240410
  Serious: No
  Sender: FDA-Public Use
  Company Number: US-IBSA PHARMA INC.-2023IBS000173

PATIENT

DRUGS (2)
  1. TIROSINT-SOL [Suspect]
     Active Substance: LEVOTHYROXINE SODIUM
     Indication: Hypothyroidism
     Dosage: 175 MICROGRAM, QD
     Route: 048
     Dates: start: 2022, end: 202212
  2. TIROSINT-SOL [Suspect]
     Active Substance: LEVOTHYROXINE SODIUM
     Dosage: 1 VIAL OF THE 175 MCG MONDAY THROUGH FRIDAY, AND 2 VIALS OF THE 175 MCG SATURDAY AND SUNDAY.
     Route: 048
     Dates: start: 202212

REACTIONS (1)
  - Thyroid function test abnormal [Recovered/Resolved]

NARRATIVE: CASE EVENT DATE: 20221201
